FAERS Safety Report 12745490 (Version 3)
Quarter: 2017Q1

REPORT INFORMATION
  Report Type: Spontaneous
  Country: US (occurrence: US)
  Receive Date: 20160915
  Receipt Date: 20170221
  Transmission Date: 20170428
  Serious: No
  Sender: FDA-Public Use
  Company Number: US-PFIZER INC-2016430410

PATIENT
  Sex: Female

DRUGS (1)
  1. XELJANZ XR [Suspect]
     Active Substance: TOFACITINIB CITRATE
     Dosage: 11 MG, UNK
     Dates: start: 20160601

REACTIONS (19)
  - Musculoskeletal pain [Unknown]
  - Meniscal degeneration [Unknown]
  - Fibromyalgia [Unknown]
  - Myalgia [Unknown]
  - Arthralgia [Unknown]
  - Joint stiffness [Unknown]
  - Back pain [Unknown]
  - Bursitis [Unknown]
  - Activities of daily living impaired [Unknown]
  - Product use issue [Unknown]
  - Chondropathy [Unknown]
  - Joint swelling [Unknown]
  - Joint effusion [Unknown]
  - Arthropathy [Unknown]
  - Fatigue [Unknown]
  - Musculoskeletal stiffness [Unknown]
  - Swelling [Unknown]
  - Pain in extremity [Unknown]
  - Neck pain [Unknown]
